FAERS Safety Report 19246231 (Version 1)
Quarter: 2021Q2

REPORT INFORMATION
  Report Type: Spontaneous
  Country: US (occurrence: US)
  Receive Date: 20210512
  Receipt Date: 20210512
  Transmission Date: 20210717
  Serious: Yes (Other)
  Sender: FDA-Public Use
  Company Number: US-SA-2021SA154473

PATIENT
  Age: 38 Year
  Sex: Male

DRUGS (1)
  1. ZANTAC [Suspect]
     Active Substance: RANITIDINE HYDROCHLORIDE
     Dosage: 300 MG
     Dates: start: 201011, end: 201812

REACTIONS (2)
  - Gastric cancer stage I [Unknown]
  - Small intestine carcinoma stage I [Unknown]

NARRATIVE: CASE EVENT DATE: 20181201
